FAERS Safety Report 21083860 (Version 1)
Quarter: 2022Q3

REPORT INFORMATION
  Report Type: Spontaneous
  Country: US (occurrence: US)
  Receive Date: 20220714
  Receipt Date: 20220714
  Transmission Date: 20221027
  Serious: No
  Sender: FDA-Public Use
  Company Number: US-JAZZ-202109USGW04643

PATIENT
  Sex: Male
  Weight: 164.1 kg

DRUGS (3)
  1. EPIDIOLEX [Suspect]
     Active Substance: CANNABIDIOL
     Indication: Partial seizures
     Dosage: 19.49 MG/KG/DAY, 1600 MILLIGRAM, BID
     Route: 048
     Dates: start: 202009
  2. EPIDIOLEX [Suspect]
     Active Substance: CANNABIDIOL
     Indication: Epilepsy
     Dosage: 16 MILLILITER, BID
     Route: 048
     Dates: start: 20190228
  3. EPIDIOLEX [Suspect]
     Active Substance: CANNABIDIOL
     Indication: Focal dyscognitive seizures

REACTIONS (4)
  - Seizure [Not Recovered/Not Resolved]
  - Ligament sprain [Unknown]
  - Emergency care [Unknown]
  - Product use in unapproved indication [Unknown]

NARRATIVE: CASE EVENT DATE: 20210101
